FAERS Safety Report 15494653 (Version 2)
Quarter: 2018Q4

REPORT INFORMATION
  Report Type: Report from Study
  Country: US (occurrence: US)
  Receive Date: 20181012
  Receipt Date: 20181119
  Transmission Date: 20190205
  Serious: Yes (Other)
  Sender: FDA-Public Use
  Company Number: PHEH2018US042573

PATIENT
  Sex: Male

DRUGS (1)
  1. COSENTYX [Suspect]
     Active Substance: SECUKINUMAB
     Indication: PRODUCT USED FOR UNKNOWN INDICATION
     Dosage: UNK
     Route: 065

REACTIONS (12)
  - Psoriatic arthropathy [Unknown]
  - Anxiety [Unknown]
  - Psychotic disorder [Unknown]
  - Arthritis [Unknown]
  - Pain [Unknown]
  - Intervertebral disc degeneration [Unknown]
  - Stenosis [Unknown]
  - Intervertebral disc protrusion [Unknown]
  - Skin lesion [Unknown]
  - Gastric haemorrhage [Unknown]
  - Coeliac disease [Unknown]
  - Psoriasis [Unknown]
